FAERS Safety Report 9722638 (Version 1)
Quarter: 2013Q2

REPORT INFORMATION
  Report Type: Spontaneous
  Country: MY (occurrence: None)
  Receive Date: 20130613
  Receipt Date: 20130613
  Transmission Date: 20140414
  Serious: Yes (Hospitalization)
  Sender: FDA-Public Use
  Company Number: B0898397A

PATIENT
  Age: 16 Year
  Sex: Male

DRUGS (7)
  1. LAMIVUDINE [Suspect]
     Indication: HIV INFECTION
  2. ZIDOVUDINE [Suspect]
     Indication: HIV INFECTION
     Dates: start: 200311
  3. DIDANOSINE [Suspect]
     Indication: HIV INFECTION
     Dates: start: 200311
  4. RITONAVIR [Suspect]
     Indication: HIV INFECTION
     Dates: start: 200311
  5. STAVUDINE [Suspect]
     Indication: HIV INFECTION
  6. EFAVIRENZ [Suspect]
     Indication: HIV INFECTION
  7. LOPINAVIR [Suspect]
     Indication: HIV INFECTION

REACTIONS (2)
  - Splenic abscess [None]
  - Septic shock [None]
